FAERS Safety Report 4463393-5 (Version None)
Quarter: 2004Q3

REPORT INFORMATION
  Report Type: 
  Country: None (occurrence: None)
  Receive Date: 20040922
  Receipt Date: 20040907
  Transmission Date: 20050211
  Serious: Yes (Other)
  Sender: FDA-Public Use
  Company Number: 2004-DE-04709GD

PATIENT
  Age: 75 Year
  Sex: Male

DRUGS (2)
  1. PRAMIPEXOLE (PRAMIPEXOLE DIHYDROCHLORIDE) (NR) [Suspect]
     Indication: PARKINSON'S DISEASE
     Dates: start: 19980101
  2. L-DOPA (LEVODOPA) [Suspect]
     Indication: PARKINSON'S DISEASE

REACTIONS (4)
  - AMNESIA [None]
  - DRUG EFFECT DECREASED [None]
  - DYSKINESIA [None]
  - MOTOR DYSFUNCTION [None]
